FAERS Safety Report 13238464 (Version 1)
Quarter: 2017Q1

REPORT INFORMATION
  Report Type: Spontaneous
  Country: IN (occurrence: IN)
  Receive Date: 20170216
  Receipt Date: 20170216
  Transmission Date: 20170428
  Serious: Yes (Disabling, Other)
  Sender: FDA-Public Use
  Company Number: IN-SUN PHARMACEUTICAL INDUSTRIES LTD-2017R1-131646

PATIENT
  Age: 58 Year
  Sex: Female

DRUGS (5)
  1. PRAMIPEXOLE. [Suspect]
     Active Substance: PRAMIPEXOLE
     Dosage: EXTENDED RELEASE
     Route: 065
  2. LEVODOPA 100MG, CARBIDOPA 25MG [Concomitant]
     Indication: PARKINSON^S DISEASE
     Dosage: UNK, TID
     Route: 065
  3. RASAGILINE [Concomitant]
     Active Substance: RASAGILINE
     Indication: PARKINSON^S DISEASE
     Dosage: 1 MG, DAILY
     Route: 065
  4. TRIHEXYPHENIDYL [Concomitant]
     Active Substance: TRIHEXYPHENIDYL
     Indication: PARKINSON^S DISEASE
     Route: 065
  5. PRAMIPEXOLE. [Suspect]
     Active Substance: PRAMIPEXOLE
     Indication: PARKINSON^S DISEASE
     Dosage: EXTENDED RELEASE
     Route: 065

REACTIONS (3)
  - Dystonia [Recovering/Resolving]
  - Hand deformity [Not Recovered/Not Resolved]
  - Muscle contracture [Not Recovered/Not Resolved]
